FAERS Safety Report 7680462-7 (Version None)
Quarter: 2011Q3

REPORT INFORMATION
  Report Type: 
  Country: None (occurrence: None)
  Receive Date: 20110812
  Receipt Date: 20110802
  Transmission Date: 20111222
  Serious: Yes (Disabling, Other)
  Sender: FDA-Public Use
  Company Number: US-PFIZER INC-2011123019

PATIENT
  Sex: Female
  Weight: 63 kg

DRUGS (3)
  1. LIBRIUM [Concomitant]
     Indication: ANXIETY
     Dosage: 5 MG, 1-2 TAB EVERY 6 HR AS NEEDED
     Dates: start: 20101014
  2. PRISTIQ [Suspect]
     Indication: DEPRESSION
     Dosage: 50 MG, 1X/DAY
     Route: 048
     Dates: start: 20101215, end: 20101218
  3. PRISTIQ [Suspect]
     Indication: ANXIETY

REACTIONS (8)
  - LOSS OF CONSCIOUSNESS [None]
  - LIBIDO DECREASED [None]
  - CONSTIPATION [None]
  - ANXIETY [None]
  - FALL [None]
  - SLEEP DISORDER [None]
  - INSOMNIA [None]
  - DIZZINESS [None]
